FAERS Safety Report 4764192-7 (Version None)
Quarter: 2005Q3

REPORT INFORMATION
  Report Type: 
  Country: None (occurrence: None)
  Receive Date: 20050902
  Receipt Date: 20050606
  Transmission Date: 20060218
  Serious: No
  Sender: FDA-Public Use
  Company Number: MPS1-10389

PATIENT
  Age: 10 Year
  Sex: Male

DRUGS (1)
  1. ALDURAZYME [Suspect]
     Dosage: 2500 UNITS QWK IV
     Route: 042
     Dates: start: 20040210

REACTIONS (2)
  - INFECTION [None]
  - PYREXIA [None]
